FAERS Safety Report 10065403 (Version 3)
Quarter: 2014Q2

REPORT INFORMATION
  Report Type: Report from Study
  Country: ES (occurrence: ES)
  Receive Date: 20140408
  Receipt Date: 20140602
  Transmission Date: 20141212
  Serious: Yes (Death, Life-Threatening)
  Sender: FDA-Public Use
  Company Number: ES-CELGENEUS-144-VELCA-14034869

PATIENT
  Age: 78 Year
  Sex: Male

DRUGS (12)
  1. REVLIMID [Suspect]
     Indication: PLASMA CELL MYELOMA
     Route: 048
     Dates: start: 20120821, end: 20130408
  2. VELCADE [Suspect]
     Indication: PLASMA CELL MYELOMA
     Dosage: 1.3 MILLIGRAM/SQ. METER
     Route: 041
     Dates: start: 20110222, end: 20110313
  3. VELCADE [Suspect]
     Dosage: 1.3 MILLIGRAM/SQ. METER
     Route: 041
     Dates: start: 20110425, end: 20110515
  4. VELCADE [Suspect]
     Dosage: 1 MILLIGRAM/SQ. METER
     Route: 041
     Dates: start: 20110516, end: 20110605
  5. VELCADE [Suspect]
     Dosage: 1 MILLIGRAM/SQ. METER
     Route: 041
     Dates: start: 20111010, end: 20111030
  6. DEXAMETHASONE [Suspect]
     Indication: PLASMA CELL MYELOMA
     Dosage: 5.3333 MILLIGRAM
     Route: 065
     Dates: start: 20110222, end: 20110314
  7. DEXAMETHASONE [Suspect]
     Dosage: 5.3333 MILLIGRAM
     Route: 065
     Dates: start: 20110314, end: 20110320
  8. DEXAMETHASONE [Suspect]
     Dosage: 5.3333 MILLIGRAM
     Route: 065
     Dates: start: 20110321, end: 20110403
  9. DEXAMETHASONE [Suspect]
     Dosage: 5.3333 MILLIGRAM
     Route: 065
     Dates: start: 20111010, end: 20111030
  10. CYCLOPHOSPHAMIDE [Concomitant]
     Indication: PALLIATIVE CARE
     Dosage: 50 MILLIGRAM
     Route: 048
     Dates: start: 20130506, end: 20131224
  11. PREDNISONE [Concomitant]
     Indication: PALLIATIVE CARE
     Dosage: 30 MILLIGRAM
     Route: 048
     Dates: start: 20130506, end: 20131224
  12. PREDNISONE [Concomitant]
     Route: 065
     Dates: start: 200712, end: 200808

REACTIONS (1)
  - Acute myeloid leukaemia [Fatal]
